FAERS Safety Report 15066913 (Version 1)
Quarter: 2018Q2

REPORT INFORMATION
  Report Type: Report from Study
  Country: DE (occurrence: DE)
  Receive Date: 20180626
  Receipt Date: 20180626
  Transmission Date: 20180711
  Serious: Yes (Other)
  Sender: FDA-Public Use
  Company Number: PHHY2018DE009790

PATIENT
  Age: 53 Year
  Sex: Female

DRUGS (1)
  1. EXTAVIA [Suspect]
     Active Substance: INTERFERON BETA-1B
     Indication: RELAPSING-REMITTING MULTIPLE SCLEROSIS
     Dosage: 1 ML, QOD (250 UG/ML)
     Route: 058
     Dates: start: 20100101

REACTIONS (12)
  - Back pain [Recovered/Resolved]
  - Blood pressure decreased [Recovered/Resolved]
  - Peripheral coldness [Unknown]
  - Chills [Recovered/Resolved]
  - Injection site irritation [Not Recovered/Not Resolved]
  - Mobility decreased [Unknown]
  - Muscle spasms [Recovered/Resolved]
  - Peripheral vascular disorder [Recovered/Resolved]
  - Dry skin [Unknown]
  - Dry eye [Unknown]
  - Pain in extremity [Not Recovered/Not Resolved]
  - Headache [Unknown]

NARRATIVE: CASE EVENT DATE: 20180520
